FAERS Safety Report 17253082 (Version 1)
Quarter: 2020Q1

REPORT INFORMATION
  Report Type: Report from Study
  Country: GB (occurrence: GB)
  Receive Date: 20200109
  Receipt Date: 20200109
  Transmission Date: 20200409
  Serious: Yes (Other)
  Sender: FDA-Public Use
  Company Number: GB-ROCHE-2513756

PATIENT

DRUGS (7)
  1. DOXORUBICIN [Suspect]
     Active Substance: DOXORUBICIN
     Indication: DIFFUSE LARGE B-CELL LYMPHOMA
     Route: 042
  2. BORTEZOMIB. [Suspect]
     Active Substance: BORTEZOMIB
     Dosage: ON DAYS 1-8
     Route: 058
     Dates: start: 20140228
  3. RITUXIMAB. [Suspect]
     Active Substance: RITUXIMAB
     Indication: DIFFUSE LARGE B-CELL LYMPHOMA
     Route: 041
  4. PREDNISOLONE. [Suspect]
     Active Substance: PREDNISOLONE
     Indication: DIFFUSE LARGE B-CELL LYMPHOMA
     Route: 048
  5. VINCRISTINE [Suspect]
     Active Substance: VINCRISTINE
     Indication: DIFFUSE LARGE B-CELL LYMPHOMA
     Dosage: MAXIMUM TOTAL DOSE 2 M
     Route: 042
  6. CYCLOPHOSPHAMIDE. [Suspect]
     Active Substance: CYCLOPHOSPHAMIDE
     Indication: DIFFUSE LARGE B-CELL LYMPHOMA
     Route: 042
  7. BORTEZOMIB. [Suspect]
     Active Substance: BORTEZOMIB
     Indication: DIFFUSE LARGE B-CELL LYMPHOMA
     Dosage: ON DAYS 1 AND 8
     Route: 042

REACTIONS (37)
  - Leukopenia [Unknown]
  - Osteoporosis [Unknown]
  - C-reactive protein increased [Unknown]
  - Hypotension [Unknown]
  - Infection [Unknown]
  - Peripheral motor neuropathy [Unknown]
  - Oedema peripheral [Unknown]
  - Varicella zoster virus infection [Unknown]
  - Neuropathy peripheral [Unknown]
  - Hypoxia [Unknown]
  - Insomnia [Unknown]
  - Kidney infection [Unknown]
  - Rales [Unknown]
  - Lower respiratory tract infection [Unknown]
  - Meningitis [Unknown]
  - Stomatitis [Unknown]
  - Platelet count decreased [Unknown]
  - Left ventricular dysfunction [Unknown]
  - Myocardial infarction [Unknown]
  - Peripheral sensory neuropathy [Unknown]
  - Cholangitis [Unknown]
  - Paraesthesia [Unknown]
  - Lethargy [Unknown]
  - Lymph gland infection [Unknown]
  - Lymphocyte count decreased [Unknown]
  - Perseveration [Unknown]
  - Peripheral nerve infection [Unknown]
  - Radiculopathy [Unknown]
  - Neoplasm [Unknown]
  - Lung neoplasm [Unknown]
  - Aneurysm [Unknown]
  - Extravasation [Unknown]
  - Scrotal infection [Unknown]
  - Otitis media [Unknown]
  - Infusion related reaction [Unknown]
  - Lymphopenia [Unknown]
  - Neutrophil count decreased [Unknown]
